FAERS Safety Report 5438467-2 (Version None)
Quarter: 2007Q3

REPORT INFORMATION
  Report Type: 
  Country: None (occurrence: None)
  Receive Date: 20070831
  Receipt Date: 20070820
  Transmission Date: 20080115
  Serious: Yes (Hospitalization, Disabling, Other)
  Sender: FDA-Public Use
  Company Number: US-ELI_LILLY_AND_COMPANY-US200708001026

PATIENT
  Age: 63 Year
  Sex: Male
  Weight: 81.632 kg

DRUGS (4)
  1. HUMULIN N [Suspect]
     Indication: DIABETES MELLITUS
  2. ASPIRIN [Concomitant]
  3. ANTICOAGULANT CITRATE DEXTROSE [Concomitant]
  4. SULFUR [Concomitant]
     Indication: RASH

REACTIONS (11)
  - ASTHENIA [None]
  - BLINDNESS [None]
  - CEREBROVASCULAR ACCIDENT [None]
  - DRUG ERUPTION [None]
  - EYE HAEMORRHAGE [None]
  - GAIT DISTURBANCE [None]
  - HEMIPARESIS [None]
  - MASTICATION DISORDER [None]
  - MICTURITION URGENCY [None]
  - PAIN IN EXTREMITY [None]
  - SKIN DISORDER [None]
